FAERS Safety Report 24527680 (Version 1)
Quarter: 2024Q4

REPORT INFORMATION
  Report Type: Report from Study
  Country: GR (occurrence: GR)
  Receive Date: 20241021
  Receipt Date: 20241021
  Transmission Date: 20250114
  Serious: Yes (Hospitalization)
  Sender: TAKEDA
  Company Number: GR-TAKEDA-2024TUS104672

PATIENT
  Age: 76 Year
  Sex: Female

DRUGS (4)
  1. HUMAN IMMUNOGLOBULIN G\HYALURONIDASE RECOMBINANT HUMAN [Suspect]
     Active Substance: HUMAN IMMUNOGLOBULIN G\HYALURONIDASE (HUMAN RECOMBINANT)
     Indication: Immunodeficiency
     Dosage: 300 MILLILITER
     Route: 050
     Dates: start: 202310
  2. Oratane [Concomitant]
     Dosage: 1 DOSAGE FORM, QD
     Route: 065
  3. PLENDIL [Concomitant]
     Active Substance: FELODIPINE
     Dosage: 1 DOSAGE FORM, QD
     Route: 065
  4. NEXIUM [Concomitant]
     Active Substance: ESOMEPRAZOLE MAGNESIUM
     Dosage: 1 DOSAGE FORM
     Route: 065

REACTIONS (3)
  - Haemorrhage [Recovered/Resolved]
  - Platelet count decreased [Unknown]
  - Diverticulum [Unknown]

NARRATIVE: CASE EVENT DATE: 20240201
